FAERS Safety Report 8556892-8 (Version None)
Quarter: 2012Q3

REPORT INFORMATION
  Report Type: 
  Country: None (occurrence: None)
  Receive Date: 20120801
  Receipt Date: 20120730
  Transmission Date: 20120928
  Serious: No
  Sender: FDA-Public Use
  Company Number: US-PFIZER INC-2012171403

PATIENT
  Sex: Female
  Weight: 68.027 kg

DRUGS (5)
  1. NEURONTIN [Suspect]
     Indication: PAIN
     Dosage: UNK
     Dates: end: 20120601
  2. ACETYLSALICYLIC ACID [Concomitant]
     Dosage: 81 MG, DAILY
  3. VOLTAREN [Concomitant]
     Indication: NECK PAIN
     Dosage: 100 MG, DAILY
  4. KLONOPIN [Suspect]
     Indication: ANXIETY
     Dosage: UNK
     Dates: start: 20120101
  5. INDERAL [Concomitant]
     Indication: TREMOR
     Dosage: 20 MG, 2X/DAY

REACTIONS (3)
  - HEADACHE [None]
  - DRUG INTOLERANCE [None]
  - SOMNOLENCE [None]
